APPROVED DRUG PRODUCT: SODIUM CHLORIDE 0.45% IN PLASTIC CONTAINER
Active Ingredient: SODIUM CHLORIDE
Strength: 450MG/100ML
Dosage Form/Route: INJECTABLE;INJECTION
Application: A208122 | Product #001 | TE Code: AP
Applicant: FRESENIUS KABI USA LLC
Approved: Jul 23, 2018 | RLD: No | RS: No | Type: RX